FAERS Safety Report 13100048 (Version 1)
Quarter: 2017Q1

REPORT INFORMATION
  Report Type: Spontaneous
  Country: US (occurrence: US)
  Receive Date: 20170110
  Receipt Date: 20170110
  Transmission Date: 20170428
  Serious: No
  Sender: FDA-Public Use
  Company Number: US-TAIHO ONCOLOGY INC-EU-2016-03320

PATIENT
  Age: 74 Year
  Sex: Male

DRUGS (17)
  1. LONSURF [Suspect]
     Active Substance: TIPIRACIL HYDROCHLORIDE\TRIFLURIDINE
     Indication: RECTAL CANCER
     Route: 048
     Dates: start: 20161116
  2. LOMOTIL [Concomitant]
     Active Substance: ATROPINE SULFATE\DIPHENOXYLATE HYDROCHLORIDE
     Dosage: NI
  3. BENEFIBER [Concomitant]
     Active Substance: STARCH, WHEAT
     Dosage: NI
  4. SIMETHICONE (DIMETHICONE) [Concomitant]
     Active Substance: DIMETHICONE
     Dosage: NI
  5. DEXAMETHASONE. [Concomitant]
     Active Substance: DEXAMETHASONE
     Dosage: NI
  6. TYLENOL [Concomitant]
     Active Substance: ACETAMINOPHEN
     Dosage: NI
  7. FINASTERIDE. [Concomitant]
     Active Substance: FINASTERIDE
     Dosage: NI
  8. FUROSEMIDE. [Concomitant]
     Active Substance: FUROSEMIDE
     Dosage: NI
  9. ONDANSETRON [Concomitant]
     Active Substance: ONDANSETRON
     Dosage: NI
  10. CALCIUM [Concomitant]
     Active Substance: CALCIUM
     Dosage: NI
  11. OXYCODONE [Concomitant]
     Active Substance: OXYCODONE
     Dosage: NI
  12. MYRBETRIQ [Concomitant]
     Active Substance: MIRABEGRON
     Dosage: NI
  13. BIOTIN [Concomitant]
     Active Substance: BIOTIN
     Dosage: NI
  14. XARELTO [Concomitant]
     Active Substance: RIVAROXABAN
     Dosage: NI
  15. OMEPRAZOLE. [Concomitant]
     Active Substance: OMEPRAZOLE
     Dosage: NI
  16. LISINOPRIL. [Concomitant]
     Active Substance: LISINOPRIL
     Dosage: NI
  17. SPIRONOLACTONE. [Concomitant]
     Active Substance: SPIRONOLACTONE
     Dosage: NI

REACTIONS (2)
  - Nausea [Unknown]
  - Fatigue [Unknown]

NARRATIVE: CASE EVENT DATE: 201611
